FAERS Safety Report 4983479-6 (Version None)
Quarter: 2006Q2

REPORT INFORMATION
  Report Type: 
  Country: None (occurrence: None)
  Receive Date: 20060426
  Receipt Date: 20060119
  Transmission Date: 20061013
  Serious: Yes (Hospitalization, Other)
  Sender: FDA-Public Use
  Company Number: US-MERCK-0601USA02602

PATIENT
  Age: 59 Year
  Sex: Male
  Weight: 118 kg

DRUGS (10)
  1. VIOXX [Suspect]
     Indication: ARTHRITIS
     Route: 048
     Dates: start: 20021219, end: 20040602
  2. ACCUPRIL [Concomitant]
     Route: 065
  3. ALPRAZOLAM [Concomitant]
     Route: 065
  4. DIOVAN [Concomitant]
     Route: 065
  5. FLURAZEPAM [Concomitant]
     Route: 065
  6. GLYBURIDE [Concomitant]
     Route: 065
  7. HYDROCODONE BITARTRATE + ACETAMINOPHEN [Concomitant]
     Route: 065
  8. LANTUS [Concomitant]
     Route: 065
  9. LIPITOR [Concomitant]
     Route: 065
  10. PRAZOSIN [Concomitant]
     Route: 065

REACTIONS (5)
  - ANXIETY [None]
  - CARDIAC FAILURE [None]
  - EYE INFECTION [None]
  - INSOMNIA [None]
  - MYOCARDIAL INFARCTION [None]
